FAERS Safety Report 20663645 (Version 1)
Quarter: 2022Q2

REPORT INFORMATION
  Report Type: Report from Study
  Country: DE (occurrence: None)
  Receive Date: 20220401
  Receipt Date: 20220401
  Transmission Date: 20220721
  Serious: Yes (Hospitalization)
  Sender: FDA-Public Use
  Company Number: DE-ROCHE-3047489

PATIENT
  Age: 76 Year
  Sex: Male
  Weight: 63 kg

DRUGS (5)
  1. TRASTUZUMAB [Suspect]
     Active Substance: TRASTUZUMAB
     Indication: HER2 positive gastric cancer
     Dosage: LAST DOSE (384 MG) ADMINISTERED ON: 15/FEB/2022
     Route: 042
     Dates: start: 20210311
  2. FLUOROURACIL [Suspect]
     Active Substance: FLUOROURACIL
     Indication: HER2 positive gastric cancer
     Dosage: DAY 1-5 IN 3 WEEKLY SCHEDULE AT RATE OF 88 MG/M2/DAY?ONCE IN 2 WEEKS (400 MG/M2 ON DAY 1, THEN 1200
     Route: 042
     Dates: start: 20210311
  3. OXALIPLATIN [Suspect]
     Active Substance: OXALIPLATIN
     Indication: HER2 positive gastric cancer
     Dosage: LAST DOSE (154.70 MG) ADMINISTERED ON: 20/APR/2021?30 MG/M2 TWICE DAILY ON DAY1 -15 IN 3 WEEKLY SCHE
     Route: 042
     Dates: start: 20210311
  4. LEUCOVORIN [Suspect]
     Active Substance: LEUCOVORIN
     Indication: HER2 positive gastric cancer
     Dosage: LAST DOSE (728 MG) ADMINISTERED ON: 20/APR/2021
     Route: 042
     Dates: start: 20210311
  5. METOPROLOL [Concomitant]
     Active Substance: METOPROLOL
     Indication: Hypotension
     Route: 048
     Dates: end: 20220308

REACTIONS (2)
  - Sinus node dysfunction [Recovered/Resolved]
  - Atrioventricular block second degree [Recovered/Resolved]

NARRATIVE: CASE EVENT DATE: 20220308
